FAERS Safety Report 5347021-2 (Version None)
Quarter: 2007Q2

REPORT INFORMATION
  Report Type: 
  Country: None (occurrence: None)
  Receive Date: 20070604
  Receipt Date: 20070525
  Transmission Date: 20071010
  Serious: Yes (Other)
  Sender: FDA-Public Use
  Company Number: CHNY20071E01917

PATIENT
  Age: 9 Year
  Sex: Female
  Weight: 18 kg

DRUGS (3)
  1. SCOPODERM ITTS (NCH) (HYOSCINE HYDROBROMIDE) TRANS-THERAPEUTIC-SYSTEM [Suspect]
     Indication: SALIVARY HYPERSECRETION
     Dosage: HALF A PATCH, TRANSDERMAL
     Route: 062
     Dates: start: 20061001
  2. CARBAMAZEPINE [Concomitant]
  3. LACTULOSE [Concomitant]

REACTIONS (2)
  - DRUG ADMINISTERED AT INAPPROPRIATE SITE [None]
  - DYSTONIA [None]
